FAERS Safety Report 25625265 (Version 1)
Quarter: 2025Q3

REPORT INFORMATION
  Report Type: Spontaneous
  Country: CA (occurrence: CA)
  Receive Date: 20250731
  Receipt Date: 20250731
  Transmission Date: 20251020
  Serious: Yes (Other)
  Sender: GRIFOLS
  Company Number: CA-IGSA-BIG0036792

PATIENT
  Age: 28 Year
  Sex: Female

DRUGS (5)
  1. HUMAN IMMUNOGLOBULIN G [Suspect]
     Active Substance: HUMAN IMMUNOGLOBULIN G
     Indication: Muscular dystrophy
     Route: 042
  2. HUMAN IMMUNOGLOBULIN G [Suspect]
     Active Substance: HUMAN IMMUNOGLOBULIN G
     Indication: Off label use
  3. METHOTREXATE [Suspect]
     Active Substance: METHOTREXATE
     Indication: Muscular dystrophy
     Dosage: 15 MILLIGRAM, Q.WK.
     Route: 065
  4. MYCOPHENOLATE MOFETIL [Suspect]
     Active Substance: MYCOPHENOLATE MOFETIL
     Indication: Muscular dystrophy
     Dosage: 1000 MILLIGRAM, BID
     Route: 065
  5. PREDNISONE [Suspect]
     Active Substance: PREDNISONE
     Indication: Muscular dystrophy

REACTIONS (2)
  - Cytopenia [Unknown]
  - Hepatic function abnormal [Unknown]
